FAERS Safety Report 4983190-1 (Version None)
Quarter: 2006Q2

REPORT INFORMATION
  Report Type: 
  Country: None (occurrence: None)
  Receive Date: 20060426
  Receipt Date: 20060315
  Transmission Date: 20061013
  Serious: Yes (Death)
  Sender: FDA-Public Use
  Company Number: JP-GLAXOSMITHKLINE-B0416638A

PATIENT
  Age: 13 Year
  Sex: Female

DRUGS (4)
  1. ACYCLOVIR [Suspect]
     Indication: PROPHYLAXIS
     Dosage: 1000MG FOUR TIMES PER DAY
     Route: 048
  2. PREDNISOLONE [Suspect]
     Indication: SYSTEMIC LUPUS ERYTHEMATOSUS
     Dosage: 12.5MG PER DAY
     Route: 048
  3. IMURAN [Suspect]
     Indication: SYSTEMIC LUPUS ERYTHEMATOSUS
     Dosage: 50MG TWICE PER DAY
     Route: 048
     Dates: start: 20020129, end: 20030824
  4. ALFAROL [Concomitant]
     Route: 048

REACTIONS (17)
  - ASPERGILLOSIS [None]
  - BACK PAIN [None]
  - BLISTER [None]
  - CANDIDIASIS [None]
  - CHOLESTASIS [None]
  - DECREASED IMMUNE RESPONSIVENESS [None]
  - DISSEMINATED INTRAVASCULAR COAGULATION [None]
  - DRUG INEFFECTIVE [None]
  - HEPATIC FAILURE [None]
  - HEPATIC FIBROSIS [None]
  - HEPATIC NECROSIS [None]
  - HISTIOCYTOSIS HAEMATOPHAGIC [None]
  - MULTI-ORGAN FAILURE [None]
  - PLEURAL EFFUSION [None]
  - PYREXIA [None]
  - RASH [None]
  - VARICELLA [None]
